FAERS Safety Report 7761443-1 (Version None)
Quarter: 2011Q3

REPORT INFORMATION
  Report Type: 
  Country: None (occurrence: None)
  Receive Date: 20110920
  Receipt Date: 20110825
  Transmission Date: 20111222
  Serious: No
  Sender: FDA-Public Use
  Company Number: US-JNJFOC-20110812482

PATIENT
  Age: 77 Year
  Sex: Male

DRUGS (6)
  1. LISINOPRIL [Concomitant]
     Indication: BLOOD PRESSURE
     Route: 048
  2. LEVOTHYROXINE SODIUM [Concomitant]
     Indication: THYROID DISORDER
     Route: 048
  3. PRILOSEC [Concomitant]
     Route: 048
  4. VITAMIN D [Concomitant]
     Indication: NUTRITIONAL SUPPORT
     Route: 048
  5. INVEGA SUSTENNA [Suspect]
     Dosage: TREATMENT INCLUDE LOWERING THE DOSE TO 78MG MONTHLY
     Route: 030
  6. INVEGA SUSTENNA [Suspect]
     Indication: SCHIZOPHRENIA
     Dosage: TREATMENT INCLUDE LOWERING THE DOSE TO 78MG MONTHLY
     Route: 030

REACTIONS (1)
  - DIZZINESS [None]
